FAERS Safety Report 10365222 (Version 2)
Quarter: 2014Q3

REPORT INFORMATION
  Report Type: Spontaneous
  Country: US (occurrence: US)
  Receive Date: 20140806
  Receipt Date: 20140806
  Transmission Date: 20150326
  Serious: Yes (Other)
  Sender: FDA-Public Use
  Company Number: US-BANPHARM-20142914

PATIENT
  Sex: Female

DRUGS (1)
  1. ZYRTEC [Suspect]
     Active Substance: CETIRIZINE HYDROCHLORIDE
     Dosage: 1 DF,
     Route: 048
     Dates: start: 20140613, end: 20140613

REACTIONS (5)
  - Oral dysaesthesia [Unknown]
  - Dizziness [Unknown]
  - Agitation [Unknown]
  - Vision blurred [Unknown]
  - Drug hypersensitivity [None]

NARRATIVE: CASE EVENT DATE: 20140614
